FAERS Safety Report 4988775-4 (Version None)
Quarter: 2006Q2

REPORT INFORMATION
  Report Type: 
  Country: None (occurrence: None)
  Receive Date: 20060502
  Receipt Date: 20060421
  Transmission Date: 20061013
  Serious: Yes (Disabling)
  Sender: FDA-Public Use
  Company Number: US-MERCK-0604USA03688

PATIENT
  Sex: Male

DRUGS (1)
  1. VIOXX [Suspect]
     Route: 048
     Dates: start: 20020401, end: 20040401

REACTIONS (5)
  - ANXIETY [None]
  - MENTAL DISORDER [None]
  - PAIN [None]
  - POLYTRAUMATISM [None]
  - THROMBOSIS [None]
